FAERS Safety Report 6932280-2 (Version None)
Quarter: 2010Q3

REPORT INFORMATION
  Report Type: 
  Country: None (occurrence: None)
  Receive Date: 20100819
  Receipt Date: 20100809
  Transmission Date: 20110219
  Serious: Yes (Death)
  Sender: FDA-Public Use
  Company Number: TN-ROCHE-720248

PATIENT
  Age: 47 Year
  Sex: Female

DRUGS (2)
  1. XELODA [Suspect]
     Dosage: DOSE: 9 CP (500 MG)
     Route: 048
     Dates: start: 20100607, end: 20100705
  2. FOLFOX-B [Concomitant]
     Dosage: DRUG REPORTED AS FOLOFOX

REACTIONS (6)
  - ASTHENIA [None]
  - DERMATOMYOSITIS [None]
  - JAUNDICE [None]
  - MUCOSAL INFLAMMATION [None]
  - PALMAR-PLANTAR ERYTHRODYSAESTHESIA SYNDROME [None]
  - SKIN TOXICITY [None]
